FAERS Safety Report 20680463 (Version 4)
Quarter: 2022Q4

REPORT INFORMATION
  Report Type: Report from Study
  Country: DE (occurrence: DE)
  Receive Date: 20220406
  Receipt Date: 20221025
  Transmission Date: 20230112
  Serious: Yes (Other)
  Sender: FDA-Public Use
  Company Number: DE-TAKEDA-2022TUS022109

PATIENT
  Age: 50 Year
  Sex: Female

DRUGS (36)
  1. TEDUGLUTIDE [Suspect]
     Active Substance: TEDUGLUTIDE
     Indication: Short-bowel syndrome
     Dosage: 2.5 MILLIGRAM, QD
     Route: 042
     Dates: start: 20180104, end: 201906
  2. TEDUGLUTIDE [Suspect]
     Active Substance: TEDUGLUTIDE
     Indication: Short-bowel syndrome
     Dosage: 2.5 MILLIGRAM, QD
     Route: 042
     Dates: start: 20180104, end: 201906
  3. TEDUGLUTIDE [Suspect]
     Active Substance: TEDUGLUTIDE
     Indication: Short-bowel syndrome
     Dosage: 2.5 MILLIGRAM, QD
     Route: 042
     Dates: start: 20180104, end: 201906
  4. TEDUGLUTIDE [Suspect]
     Active Substance: TEDUGLUTIDE
     Indication: Short-bowel syndrome
     Dosage: 2.5 MILLIGRAM, QD
     Route: 042
     Dates: start: 20180104, end: 201906
  5. TEDUGLUTIDE [Suspect]
     Active Substance: TEDUGLUTIDE
     Dosage: 1.25 MILLIGRAM, QD
     Route: 042
     Dates: start: 201906
  6. TEDUGLUTIDE [Suspect]
     Active Substance: TEDUGLUTIDE
     Dosage: 1.25 MILLIGRAM, QD
     Route: 042
     Dates: start: 201906
  7. TEDUGLUTIDE [Suspect]
     Active Substance: TEDUGLUTIDE
     Dosage: 1.25 MILLIGRAM, QD
     Route: 042
     Dates: start: 201906
  8. TEDUGLUTIDE [Suspect]
     Active Substance: TEDUGLUTIDE
     Dosage: 1.25 MILLIGRAM, QD
     Route: 042
     Dates: start: 201906
  9. FOSFOMYCIN TROMETHAMINE [Concomitant]
     Active Substance: FOSFOMYCIN TROMETHAMINE
     Indication: Urinary tract infection
     Dosage: 3.00 GRAM, QD
     Route: 048
     Dates: start: 20211109, end: 20211112
  10. LOPERAMIDE [Concomitant]
     Active Substance: LOPERAMIDE
     Indication: Diarrhoea
     Dosage: 2 MILLIGRAM, QID
     Route: 048
     Dates: start: 20210627, end: 20210730
  11. IRON FERROUS GLYCIN SULFATE [Concomitant]
     Indication: Iron deficiency
     Dosage: 100.00 MILLIGRAM, BID
     Route: 048
     Dates: start: 20210627, end: 20210730
  12. CLOPIDOGREL [Concomitant]
     Active Substance: CLOPIDOGREL BISULFATE
     Indication: Haemostasis
     Dosage: 75.00 MILLIGRAM, QD
     Route: 048
     Dates: start: 20210627, end: 20210730
  13. PANTOPRAZOLE SODIUM [Concomitant]
     Active Substance: PANTOPRAZOLE SODIUM
     Indication: Short-bowel syndrome
     Dosage: 20 MILLIGRAM, QD
     Route: 048
     Dates: start: 201911
  14. FUROSEMIDE [Concomitant]
     Active Substance: FUROSEMIDE
     Indication: Product used for unknown indication
     Dosage: 20 MILLIGRAM, QD
     Route: 065
     Dates: start: 201911
  15. PANCRELIPASE [Concomitant]
     Active Substance: PANCRELIPASE
     Indication: Short-bowel syndrome
     Dosage: 25000 INTERNATIONAL UNIT, QID
     Route: 048
     Dates: start: 201911
  16. FENTANYL [Concomitant]
     Active Substance: FENTANYL
     Indication: Pain
     Dosage: 75 MILLIGRAM
     Route: 062
     Dates: start: 201911
  17. MORPHINE [Concomitant]
     Active Substance: MORPHINE
     Indication: Pain
     Dosage: 20 MILLIGRAM
     Route: 065
     Dates: start: 201911
  18. CERNEVIT [Concomitant]
     Active Substance: VITAMINS
     Indication: Short-bowel syndrome
     Dosage: UNK
     Route: 065
     Dates: start: 201911
  19. CHROMIC CHLORIDE\CUPROUS CHLORIDE\FERRIC CHLORIDE\MANGANESE CHLORIDE\P [Concomitant]
     Active Substance: CHROMIC CHLORIDE\CUPROUS CHLORIDE\FERRIC CHLORIDE\MANGANESE CHLORIDE\POTASSIUM IODIDE\SODIUM FLUORID
     Indication: Short-bowel syndrome
     Dosage: UNK
     Route: 065
     Dates: start: 201911
  20. HUMIRA [Concomitant]
     Active Substance: ADALIMUMAB
     Indication: Crohn^s disease
     Dosage: 40 MILLIGRAM, Q2WEEKS
     Route: 058
  21. PHENPROCOUMON [Concomitant]
     Active Substance: PHENPROCOUMON
     Indication: Thrombosis prophylaxis
     Dosage: 3 MILLIGRAM
     Route: 065
     Dates: start: 202008
  22. VITAMIN D3 [Concomitant]
     Active Substance: CHOLECALCIFEROL
     Indication: Short-bowel syndrome
     Dosage: 1000 INTERNATIONAL UNIT, QD
     Route: 048
     Dates: start: 202008
  23. FENTANYL [Concomitant]
     Active Substance: FENTANYL
     Indication: Pain
     Dosage: 75 MICROGRAM
     Route: 062
     Dates: start: 202008
  24. .ALPHA.-TOCOPHEROL\ERGOCALCIFEROL\PHYTONADIONE\VITAMIN A [Concomitant]
     Active Substance: .ALPHA.-TOCOPHEROL\ERGOCALCIFEROL\PHYTONADIONE\VITAMIN A
     Indication: Short-bowel syndrome
     Dosage: 10 MILLILITER, QD
     Route: 042
     Dates: start: 202008
  25. ASCORBIC ACID\BIOTIN\CYANOCOBALAMIN\FOLIC ACID\NIACINAMIDE\PANTOTHENIC [Concomitant]
     Active Substance: ASCORBIC ACID\BIOTIN\CYANOCOBALAMIN\FOLIC ACID\NIACINAMIDE\PANTOTHENIC ACID\PYRIDOXINE\RIBOFLAVIN\TH
     Indication: Short-bowel syndrome
     Dosage: UNK UNK, QD
     Route: 042
     Dates: start: 202008
  26. ELECTROLYTES NOS\MINERALS [Concomitant]
     Active Substance: ELECTROLYTES NOS\MINERALS
     Indication: Short-bowel syndrome
     Dosage: 10 MILLILITER, QD
     Route: 042
     Dates: start: 202008
  27. CERTOPARIN SODIUM [Concomitant]
     Active Substance: CERTOPARIN SODIUM
     Indication: Thrombosis prophylaxis
     Dosage: 8000 INTERNATIONAL UNIT, QD
     Route: 058
     Dates: start: 202008, end: 202008
  28. MORPHIN SULFATE SINTETICA [Concomitant]
     Indication: Pain
     Dosage: 20 MILLIGRAM
     Route: 065
     Dates: start: 202008
  29. METAMIZOL [Concomitant]
     Active Substance: METAMIZOLE SODIUM
     Indication: Pain
     Dosage: 500 UNK
     Route: 048
     Dates: start: 202008
  30. IRON [Concomitant]
     Active Substance: IRON
     Indication: Iron deficiency
     Dosage: 30 MILLIGRAM
     Route: 048
     Dates: start: 20210602
  31. PROPOFOL [Concomitant]
     Active Substance: PROPOFOL
     Indication: Endoscopy
     Dosage: 240 MILLIGRAM, SINGLE
     Route: 042
     Dates: start: 20211104, end: 20211104
  32. IBUPROFEN [Concomitant]
     Active Substance: IBUPROFEN
     Indication: Pain
     Dosage: 400 MILLIGRAM
     Route: 048
     Dates: start: 20210627, end: 20210627
  33. FLUCLOXACILLIN [Concomitant]
     Active Substance: FLUCLOXACILLIN
     Indication: Urinary tract infection
     Dosage: 3 GRAM, TID
     Route: 042
     Dates: start: 20210707, end: 20210820
  34. PIPERACILLIN SODIUM\TAZOBACTAM SODIUM [Concomitant]
     Active Substance: PIPERACILLIN SODIUM\TAZOBACTAM SODIUM
     Indication: Urinary tract infection
     Dosage: UNK
     Route: 065
     Dates: start: 20210704, end: 20210713
  35. VORICONAZOLE [Concomitant]
     Active Substance: VORICONAZOLE
     Indication: Device related infection
     Dosage: UNK
     Route: 065
     Dates: start: 20210717, end: 20210730
  36. VITAMIN B12 [Concomitant]
     Active Substance: CYANOCOBALAMIN
     Indication: Short-bowel syndrome
     Dosage: UNK
     Route: 058
     Dates: start: 201911

REACTIONS (2)
  - Biliary dilatation [Not Recovered/Not Resolved]
  - Dilatation intrahepatic duct acquired [Not Recovered/Not Resolved]

NARRATIVE: CASE EVENT DATE: 20220302
